FAERS Safety Report 4270056-8 (Version None)
Quarter: 2004Q1

REPORT INFORMATION
  Report Type: 
  Country: None (occurrence: None)
  Receive Date: 20040114
  Receipt Date: 20030128
  Transmission Date: 20041129
  Serious: No
  Sender: FDA-Public Use
  Company Number: US-GLAXOSMITHKLINE-A0394267A

PATIENT
  Age: 52 Year
  Sex: Female

DRUGS (1)
  1. WELLBUTRIN [Suspect]
     Indication: ANXIETY
     Dosage: 75MG PER DAY
     Route: 048
     Dates: end: 20020301

REACTIONS (1)
  - LOSS OF LIBIDO [None]
